FAERS Safety Report 9850018 (Version 1)
Quarter: 2013Q4

REPORT INFORMATION
  Report Type: Spontaneous
  Country: US (occurrence: None)
  Receive Date: 20131224
  Receipt Date: 20131224
  Transmission Date: 20140711
  Serious: Yes (Hospitalization)
  Sender: FDA-Public Use
  Company Number: 20130608

PATIENT
  Age: 60 Year
  Sex: Female

DRUGS (15)
  1. VENOFER (IRON SUCROSE INJECTION, USP) (2340-10) 20 MG/ML [Suspect]
     Indication: IRON DEFICIENCY ANAEMIA
     Route: 042
     Dates: start: 20131017, end: 20131017
  2. VENOFER [Suspect]
     Indication: IRON DEFICIENCY ANAEMIA
     Route: 042
     Dates: start: 20131017, end: 20131017
  3. COUMADIN (WARFARIN) [Concomitant]
  4. FOLBEE [Concomitant]
  5. TOVIAZ (FESOTERODINE FUMARATE) [Concomitant]
  6. ZETIA (EZETIMIBE) [Concomitant]
  7. SIMVASTATIN [Concomitant]
  8. SPIRONOLACTONE [Concomitant]
  9. VALACYCLOVIR [Concomitant]
  10. VITAMIN D [Concomitant]
  11. BISOPROLOL FUMARATE [Concomitant]
  12. BENAZEPRIL HCL [Concomitant]
  13. ALPRAZOLAM [Concomitant]
  14. ALBUTEROL [Concomitant]
  15. LANSOPRAZOLE [Concomitant]

REACTIONS (6)
  - Dyspnoea [None]
  - Arthralgia [None]
  - Joint swelling [None]
  - Nausea [None]
  - Vomiting [None]
  - Off label use [None]
